FAERS Safety Report 21498989 (Version 2)
Quarter: 2022Q4

REPORT INFORMATION
  Report Type: Report from Study
  Country: CA (occurrence: CA)
  Receive Date: 20221024
  Receipt Date: 20221027
  Transmission Date: 20230113
  Serious: Yes (Hospitalization)
  Sender: FDA-Public Use
  Company Number: CA-GLAXOSMITHKLINE-CA2022151512

PATIENT

DRUGS (1)
  1. BELANTAMAB MAFODOTIN [Suspect]
     Active Substance: BELANTAMAB MAFODOTIN
     Indication: Plasma cell myeloma
     Dosage: 2.5 MG/KG, CYC (236.75MG)
     Route: 042
     Dates: start: 20221004

REACTIONS (1)
  - Pneumonia bacterial [Not Recovered/Not Resolved]

NARRATIVE: CASE EVENT DATE: 20221005
